FAERS Safety Report 23016868 (Version 1)
Quarter: 2023Q4

REPORT INFORMATION
  Report Type: Spontaneous
  Country: US (occurrence: US)
  Receive Date: 20231002
  Receipt Date: 20231002
  Transmission Date: 20240110
  Serious: No
  Sender: FDA-Public Use
  Company Number: US-drreddys-LIT/USA/23/0175426

PATIENT
  Age: 28 Year
  Sex: Female

DRUGS (2)
  1. SEVELAMER [Suspect]
     Active Substance: SEVELAMER
     Indication: Hyperphosphataemia
  2. SEVELAMER [Suspect]
     Active Substance: SEVELAMER
     Dosage: INCREASED

REACTIONS (1)
  - Drug ineffective [Unknown]
